FAERS Safety Report 12285762 (Version 1)
Quarter: 2016Q2

REPORT INFORMATION
  Report Type: Spontaneous
  Country: JP (occurrence: JP)
  Receive Date: 20160420
  Receipt Date: 20160420
  Transmission Date: 20160815
  Serious: Yes (Disabling, Other)
  Sender: FDA-Public Use
  Company Number: JP-GLAXOSMITHKLINE-A200703399

PATIENT
  Age: 60 Year
  Sex: Male
  Weight: 69 kg

DRUGS (5)
  1. ADEFOVIR DIPIVOXIL. [Suspect]
     Active Substance: ADEFOVIR DIPIVOXIL
     Indication: HEPATIC CIRRHOSIS
     Route: 048
     Dates: start: 200301, end: 20061121
  2. LUPRAC [Concomitant]
     Active Substance: TORSEMIDE
     Indication: HYPERTENSION
     Route: 048
  3. ARTIST [Concomitant]
     Active Substance: CARVEDILOL
     Indication: HYPERTENSION
     Route: 048
  4. ZEFIX [Concomitant]
     Active Substance: LAMIVUDINE
     Route: 048
     Dates: start: 200006, end: 20061121
  5. URSO [Concomitant]
     Active Substance: URSODIOL
     Indication: HEPATIC CIRRHOSIS
     Route: 048
     Dates: start: 200006

REACTIONS (7)
  - Hypophosphataemia [Unknown]
  - Gait disturbance [Unknown]
  - Osteomalacia [Recovering/Resolving]
  - Back pain [Unknown]
  - Blood alkaline phosphatase increased [Unknown]
  - Renal tubular disorder [Recovering/Resolving]
  - Arthralgia [Unknown]

NARRATIVE: CASE EVENT DATE: 200609
